FAERS Safety Report 8204213-2 (Version None)
Quarter: 2012Q1

REPORT INFORMATION
  Report Type: 
  Country: None (occurrence: None)
  Receive Date: 20120313
  Receipt Date: 20120307
  Transmission Date: 20120608
  Serious: Yes (Hospitalization)
  Sender: FDA-Public Use
  Company Number: DE-AMGEN-DEUSP2012014746

PATIENT
  Age: 38 Year
  Sex: Female
  Weight: 90 kg

DRUGS (5)
  1. DOXORUBICIN HCL [Suspect]
     Indication: BREAST CANCER
     Dosage: 39 MG, QWK
     Route: 042
     Dates: start: 20120131
  2. PACLITAXEL [Suspect]
     Indication: BREAST CANCER
     Dosage: 154 MG, QWK
     Route: 042
     Dates: start: 20120131
  3. TRASTUZUMAB [Suspect]
     Indication: BREAST CANCER
     Dosage: 720 MG, Q3WK
     Route: 042
     Dates: start: 20120131
  4. NEUPOGEN [Suspect]
     Indication: CHEMOTHERAPY
     Dosage: UNK
     Dates: start: 20120208, end: 20120216
  5. LAPATINIB [Suspect]
     Indication: BREAST CANCER
     Dosage: 750 MG, QD
     Route: 048
     Dates: start: 20120131

REACTIONS (1)
  - NEURALGIA [None]
